FAERS Safety Report 7149471 (Version 11)
Quarter: 2012Q4

REPORT INFORMATION
  Report Type: 
  Country: US (occurrence: US)
  Receive Date: 20090930
  Receipt Date: 20120828
  Transmission Date: 20130627
  Serious: Yes (Hospitalization)
  Sender: FDA-Public Use
  Company Number: US-009507513-2009SP017305

PATIENT

DRUGS (3)
  1. NUVARING [Suspect]
     Indication: CONTRACEPTION
     Dosage: 1 DF, UNK
     Dates: start: 200604, end: 200611
  2. RESTORIL [Concomitant]
     Indication: SLEEP DISORDER THERAPY
     Dosage: 30 mg, PRN
     Dates: start: 200608
  3. TOPROL XL [Concomitant]
     Indication: HYPERTENSION
     Dosage: 25 mg, QD
     Dates: start: 200609, end: 200611

REACTIONS (8)
  - Subarachnoid haemorrhage [Recovered/Resolved]
  - Cerebral venous thrombosis [Recovered/Resolved]
  - Chest pain [Unknown]
  - Hypertension [Unknown]
  - Pelvic pain [Unknown]
  - Dysfunctional uterine bleeding [Unknown]
  - Cerebral thrombosis [Recovered/Resolved]
  - Hypercoagulation [Recovered/Resolved]
